FAERS Safety Report 9258300 (Version 1)
Quarter: 2013Q2

REPORT INFORMATION
  Report Type: Spontaneous
  Country: US (occurrence: None)
  Receive Date: 20130424
  Receipt Date: 20130424
  Transmission Date: 20140414
  Serious: Yes (Life-Threatening)
  Sender: FDA-Public Use
  Company Number: None

PATIENT
  Age: 66 Year
  Sex: Female

DRUGS (1)
  1. IRON DEXTRAN [Suspect]
     Indication: IRON DEFICIENCY ANAEMIA
     Route: 042
     Dates: start: 20130411

REACTIONS (1)
  - Unevaluable event [None]
